FAERS Safety Report 21770055 (Version 1)
Quarter: 2022Q4

REPORT INFORMATION
  Report Type: Spontaneous
  Country: FR (occurrence: FR)
  Receive Date: 20221223
  Receipt Date: 20221223
  Transmission Date: 20230113
  Serious: Yes (Hospitalization)
  Sender: FDA-Public Use
  Company Number: None

PATIENT

DRUGS (2)
  1. ATROPINE [Suspect]
     Active Substance: ATROPINE
     Indication: Product used for unknown indication
     Dosage: NOT SPECIFIED
     Route: 047
     Dates: start: 202203, end: 202203
  2. LYSERGIDE [Concomitant]
     Active Substance: LYSERGIDE
     Indication: Product used for unknown indication
     Dosage: NOT SPECIFIED
     Route: 065
     Dates: start: 202203, end: 202203

REACTIONS (3)
  - Behaviour disorder [Recovered/Resolved]
  - Product counterfeit [Unknown]
  - Drug abuse [Recovered/Resolved]

NARRATIVE: CASE EVENT DATE: 20220301
